FAERS Safety Report 9736974 (Version 2)
Quarter: 2014Q1

REPORT INFORMATION
  Report Type: Spontaneous
  Country: US (occurrence: US)
  Receive Date: 20131206
  Receipt Date: 20140208
  Transmission Date: 20141002
  Serious: No
  Sender: FDA-Public Use
  Company Number: US-009507513-1312USA003267

PATIENT
  Age: 56 Year
  Sex: Female
  Weight: 99.77 kg

DRUGS (14)
  1. OXYTROL FOR WOMEN [Suspect]
     Indication: PRODUCT USED FOR UNKNOWN INDICATION
     Dosage: 1 DF, Q4D
     Route: 062
     Dates: start: 20131101, end: 20131109
  2. FENTANYL [Concomitant]
     Indication: PAIN
     Dosage: UNK, QOD
     Route: 062
  3. TRAMADOL HYDROCHLORIDE [Concomitant]
     Indication: PAIN
     Dosage: UNK, UNKNOWN
  4. FLEXERIL [Concomitant]
     Indication: PAIN
     Dosage: UNK, UNKNOWN
  5. NEURONTIN [Concomitant]
     Indication: PAIN
     Dosage: UNK, UNKNOWN
  6. PERCOCET [Concomitant]
     Indication: PAIN
     Dosage: UNK, UNKNOWN
  7. ZOLOFT [Concomitant]
     Indication: DEPRESSION
     Dosage: UNK, UNKNOWN
  8. DEPAKOTE [Concomitant]
     Indication: DEPRESSION
     Dosage: UNK, UNKNOWN
  9. XANAX [Concomitant]
     Indication: DEPRESSION
     Dosage: UNK, UNKNOWN
  10. THORAZINE [Concomitant]
     Indication: DEPRESSION
     Dosage: UNK, UNKNOWN
  11. LUNESTA [Concomitant]
     Indication: DEPRESSION
     Dosage: UNK, UNKNOWN
  12. TRAZODONE HYDROCHLORIDE [Concomitant]
     Indication: DEPRESSION
     Dosage: UNK, UNKNOWN
  13. RESTORIL (CHLORMEZANONE) [Concomitant]
     Indication: PRODUCT USED FOR UNKNOWN INDICATION
     Dosage: UNK, UNKNOWN
  14. CYMBALTA [Concomitant]
     Indication: PRODUCT USED FOR UNKNOWN INDICATION
     Dosage: UNK, UNKNOWN

REACTIONS (3)
  - Inappropriate schedule of drug administration [Unknown]
  - Wrong technique in drug usage process [Unknown]
  - Product adhesion issue [Unknown]
